FAERS Safety Report 7481371-9 (Version None)
Quarter: 2011Q2

REPORT INFORMATION
  Report Type: 
  Country: None (occurrence: None)
  Receive Date: 20110516
  Receipt Date: 20110509
  Transmission Date: 20111010
  Serious: Yes (Hospitalization, Other)
  Sender: FDA-Public Use
  Company Number: CA-B.I. PHARMACEUTICALS,INC./RIDGEFIELD-2011-CN-00611CN

PATIENT
  Age: 86 Year
  Sex: Male

DRUGS (4)
  1. DIAMICRON [Concomitant]
  2. METFORMIN HCL [Concomitant]
  3. PRADAXA [Suspect]
     Indication: ATRIAL FIBRILLATION
     Dosage: 220 MG
     Dates: start: 20110428, end: 20110503
  4. ZOCOR [Concomitant]

REACTIONS (2)
  - RECTAL HAEMORRHAGE [None]
  - RECTOSIGMOID CANCER [None]
